FAERS Safety Report 21917754 (Version 2)
Quarter: 2023Q1

REPORT INFORMATION
  Report Type: Report from Study
  Country: US (occurrence: US)
  Receive Date: 20230127
  Receipt Date: 20230206
  Transmission Date: 20230418
  Serious: Yes (Other)
  Sender: FDA-Public Use
  Company Number: US-ABBVIE-4283719

PATIENT
  Age: 62 Year
  Sex: Female

DRUGS (1)
  1. SKYRIZI [Suspect]
     Active Substance: RISANKIZUMAB-RZAA
     Indication: Psoriasis
     Route: 058

REACTIONS (9)
  - Rotator cuff repair [Unknown]
  - Rash [Unknown]
  - Skin exfoliation [Unknown]
  - Erythema [Unknown]
  - Arthralgia [Unknown]
  - Swelling face [Unknown]
  - Pain [Unknown]
  - Skin warm [Unknown]
  - Facial pain [Unknown]

NARRATIVE: CASE EVENT DATE: 20221019
